FAERS Safety Report 17107975 (Version 4)
Quarter: 2019Q4

REPORT INFORMATION
  Report Type: Spontaneous
  Country: CH (occurrence: CH)
  Receive Date: 20191203
  Receipt Date: 20191211
  Transmission Date: 20200122
  Serious: Yes (Death, Hospitalization, Other)
  Sender: FDA-Public Use
  Company Number: CH-PFIZER INC-2019517332

PATIENT
  Age: 82 Year
  Sex: Male
  Weight: 77 kg

DRUGS (10)
  1. CORDARONE [Suspect]
     Active Substance: AMIODARONE HYDROCHLORIDE
     Dosage: 200 MG, 1X/DAY (1-0-0)
     Route: 048
     Dates: start: 20191018, end: 20191018
  2. SPIRICORT [Suspect]
     Active Substance: PREDNISOLONE
     Dosage: 40 MG, DAILY
     Dates: start: 20191029, end: 20191030
  3. SPIRICORT [Suspect]
     Active Substance: PREDNISOLONE
     Dosage: 20 MG, DAILY
     Dates: start: 20191031, end: 20191101
  4. SOLU-MEDROL [Suspect]
     Active Substance: METHYLPREDNISOLONE SODIUM SUCCINATE
     Dosage: 80 MG, DAILY
     Dates: start: 20191025, end: 20191028
  5. KEYTRUDA [Suspect]
     Active Substance: PEMBROLIZUMAB
     Indication: BLADDER TRANSITIONAL CELL CARCINOMA METASTATIC
     Dosage: 200 MG, EVERY 3 WEEKS
     Route: 042
     Dates: start: 20190917, end: 20191007
  6. SOLU-MEDROL [Suspect]
     Active Substance: METHYLPREDNISOLONE SODIUM SUCCINATE
     Indication: PROPHYLAXIS
     Dosage: 125 MG, DAILY (ALSO REPORTED 130 MG)
     Route: 042
     Dates: start: 20191016, end: 20191025
  7. CORDARONE [Suspect]
     Active Substance: AMIODARONE HYDROCHLORIDE
     Dosage: 200 MG, 3X/DAY (1-1-1)
     Route: 048
     Dates: start: 20191016, end: 20191017
  8. ATORVASTATIN AXAPHARM [Suspect]
     Active Substance: ATORVASTATIN CALCIUM
     Dosage: 40 MG, 1X/DAY (0-0-1, LONG-TERM THERAPHY)
     Route: 048
     Dates: end: 20191018
  9. ELIQUIS [Suspect]
     Active Substance: APIXABAN
     Dosage: 5 MILLIGRAM, AT INTERVAL OF 12 HOURS
     Route: 048
     Dates: start: 201411
  10. CONCOR [Suspect]
     Active Substance: BISOPROLOL FUMARATE
     Dosage: 5 MG, 2X/DAY (0.5-0-1^ LONG-THERM THERAPHY)
     Route: 048

REACTIONS (9)
  - Hepatic function abnormal [Unknown]
  - Leukocytosis [Fatal]
  - Myocarditis [Fatal]
  - Liver disorder [Fatal]
  - Multiple organ dysfunction syndrome [Fatal]
  - Renal impairment [Unknown]
  - Gastrointestinal haemorrhage [Unknown]
  - Hepatic failure [Fatal]
  - Myocardial necrosis marker increased [Unknown]

NARRATIVE: CASE EVENT DATE: 2019
